FAERS Safety Report 10380594 (Version 1)
Quarter: 2014Q3

REPORT INFORMATION
  Report Type: Spontaneous
  Country: US (occurrence: None)
  Receive Date: 20140812
  Receipt Date: 20140812
  Transmission Date: 20150326
  Serious: No
  Sender: FDA-Public Use
  Company Number: None

PATIENT
  Age: 14 Year
  Sex: Female
  Weight: 47.63 kg

DRUGS (1)
  1. ERYTHROMYCIN ETHYLSUCCINATE FOR 200 MG/3 ML ARBOR PHARMACEUTICALS [Suspect]
     Active Substance: ERYTHROMYCIN ETHYLSUCCINATE
     Indication: IMPAIRED GASTRIC EMPTYING
     Route: 048
     Dates: start: 20140801, end: 20140810

REACTIONS (3)
  - Fatigue [None]
  - Thirst [None]
  - Nausea [None]

NARRATIVE: CASE EVENT DATE: 20140810
